FAERS Safety Report 10066389 (Version 1)
Quarter: 2014Q2

REPORT INFORMATION
  Report Type: Spontaneous
  Country: IT (occurrence: IT)
  Receive Date: 20140408
  Receipt Date: 20140408
  Transmission Date: 20141212
  Serious: Yes (Other)
  Sender: FDA-Public Use
  Company Number: IT-ACTAVIS-2013-25253

PATIENT
  Sex: Female

DRUGS (3)
  1. EPIRUBICIN (UNKNOWN) [Suspect]
     Indication: INVASIVE DUCTAL BREAST CARCINOMA
     Dates: start: 20130204, end: 20130204
  2. TAXOTERE (AVENTIS PHARMA SA) (ATC L01CD02) [Suspect]
     Indication: INVASIVE DUCTAL BREAST CARCINOMA
     Dates: start: 20130204, end: 20130204
  3. EUTIROX [Concomitant]
     Indication: THYROIDECTOMY
     Route: 065

REACTIONS (5)
  - Abdominal pain [Recovered/Resolved]
  - Pyrexia [Recovered/Resolved]
  - Vomiting [Recovered/Resolved]
  - Nausea [Recovered/Resolved]
  - Asthenia [Recovered/Resolved]
